FAERS Safety Report 6587773-7 (Version None)
Quarter: 2010Q1

REPORT INFORMATION
  Report Type: 
  Country: None (occurrence: None)
  Receive Date: 20100218
  Receipt Date: 20100205
  Transmission Date: 20100710
  Serious: Yes (Other)
  Sender: FDA-Public Use
  Company Number: PHHY2009US07260

PATIENT
  Sex: Female

DRUGS (2)
  1. GLEEVEC [Suspect]
     Indication: CHRONIC MYELOID LEUKAEMIA
     Dosage: 400 MG, QD
     Route: 048
     Dates: start: 20080925
  2. ASPIRIN [Concomitant]
     Dosage: 81 MG
     Route: 048

REACTIONS (7)
  - AGEUSIA [None]
  - GENERALISED ERYTHEMA [None]
  - GINGIVAL PAIN [None]
  - LICHEN PLANUS [None]
  - RASH MACULO-PAPULAR [None]
  - SENSITIVITY OF TEETH [None]
  - SWOLLEN TONGUE [None]
